FAERS Safety Report 5933978-5 (Version None)
Quarter: 2008Q4

REPORT INFORMATION
  Report Type: 
  Country: None (occurrence: None)
  Receive Date: 20081010
  Receipt Date: 20071011
  Transmission Date: 20090506
  Serious: Yes (Other)
  Sender: FDA-Public Use
  Company Number: 2007SP020702

PATIENT
  Age: 29 Year
  Sex: Female

DRUGS (2)
  1. TEMODAR [Suspect]
     Indication: ANAPLASTIC ASTROCYTOMA
     Dosage: PO
     Route: 048
  2. DILANTIN [Concomitant]

REACTIONS (2)
  - APLASTIC ANAEMIA [None]
  - RASH [None]
